FAERS Safety Report 6169540-1 (Version None)
Quarter: 2009Q2

REPORT INFORMATION
  Report Type: 
  Country: None (occurrence: None)
  Receive Date: 20090428
  Receipt Date: 20090420
  Transmission Date: 20091009
  Serious: Yes (Other)
  Sender: FDA-Public Use
  Company Number: FR-JNJFOC-20090404872

PATIENT
  Age: 14 Year
  Sex: Female

DRUGS (3)
  1. RISPERIDONE [Suspect]
     Route: 048
  2. RISPERIDONE [Suspect]
     Indication: ABNORMAL BEHAVIOUR
     Route: 048
  3. TERCIAN [Suspect]
     Indication: ABNORMAL BEHAVIOUR
     Dosage: 10MG IN THE MORNING, 20MG AT 12:00AM, 20MG IN THE EVENING
     Route: 065

REACTIONS (3)
  - CONSTIPATION [None]
  - CYTOLYTIC HEPATITIS [None]
  - GASTROINTESTINAL DISORDER [None]
